FAERS Safety Report 7935359-1 (Version None)
Quarter: 2011Q4

REPORT INFORMATION
  Report Type: 
  Country: None (occurrence: None)
  Receive Date: 20111122
  Receipt Date: 20111117
  Transmission Date: 20120403
  Serious: Yes (Other)
  Sender: FDA-Public Use
  Company Number: US-BAXTER-2011BH036816

PATIENT
  Age: 34 Month
  Sex: Male

DRUGS (5)
  1. CISPLATIN [Suspect]
     Indication: EPENDYMOMA MALIGNANT
     Route: 065
  2. VINBLASTINE SULFATE [Suspect]
     Indication: EPENDYMOMA MALIGNANT
     Route: 065
  3. CYCLOPHOSPHAMIDE [Suspect]
     Indication: EPENDYMOMA MALIGNANT
     Route: 065
  4. METHOTREXATE [Suspect]
     Indication: EPENDYMOMA MALIGNANT
     Route: 065
  5. VINCRISTINE [Suspect]
     Indication: EPENDYMOMA MALIGNANT
     Route: 065

REACTIONS (1)
  - BRAIN OEDEMA [None]
